FAERS Safety Report 22682555 (Version 3)
Quarter: 2024Q4

REPORT INFORMATION
  Report Type: Report from Study
  Country: ES (occurrence: ES)
  Receive Date: 20230707
  Receipt Date: 20241218
  Transmission Date: 20250115
  Serious: Yes (Death, Hospitalization, Other)
  Sender: PFIZER
  Company Number: ES-ROCHE-3044381

PATIENT
  Age: 55 Year
  Sex: Female
  Weight: 59 kg

DRUGS (16)
  1. CARBOPLATIN [Suspect]
     Active Substance: CARBOPLATIN
     Indication: Small cell lung cancer extensive stage
     Dosage: 626.75 MG
     Dates: start: 20210614
  2. ETOPOSIDE [Suspect]
     Active Substance: ETOPOSIDE
     Indication: Small cell lung cancer extensive stage
     Dosage: 161 MG
     Route: 042
     Dates: start: 20210614
  3. ATEZOLIZUMAB [Suspect]
     Active Substance: ATEZOLIZUMAB
     Indication: Small cell lung cancer extensive stage
     Dosage: 1200 MG, EVERY 3 WEEKS (ON 04MAY2022: MOST RECENT DOSE OF STUDY 1200 MG DRUG PRIOR TO AE AND SAE)
     Route: 042
     Dates: start: 20210614
  4. ATEZOLIZUMAB [Suspect]
     Active Substance: ATEZOLIZUMAB
     Dosage: 1200 MG, EVERY 3 WEEKS (ON 04MAY2022: MOST RECENT DOSE OF STUDY 1200 MG DRUG PRIOR TO AE AND SAE)
     Route: 042
     Dates: start: 20220504
  5. LYRICA [Concomitant]
     Active Substance: PREGABALIN
     Dosage: UNK, 2X/DAY
  6. ESCITALOPRAM [Concomitant]
     Active Substance: ESCITALOPRAM OXALATE
     Dosage: UNK, DAILY
  7. ETORICOXIB [Concomitant]
     Active Substance: ETORICOXIB
     Dosage: UNK, AS NEEDED
  8. CIPROFLOXACIN [Concomitant]
     Active Substance: CIPROFLOXACIN
     Dosage: UNK
     Dates: start: 20220223, end: 20220228
  9. VENTOLIN [Concomitant]
     Active Substance: ALBUTEROL SULFATE
     Dosage: UNK
     Dates: start: 20220223, end: 20220228
  10. SIMVASTATIN [Concomitant]
     Active Substance: SIMVASTATIN
     Dosage: UNK, DAILY
  11. CYCLOBENZAPRINE [Concomitant]
     Active Substance: CYCLOBENZAPRINE
     Dosage: UNK, AS NEEDED
  12. CODEINE PHOSPHATE [Concomitant]
     Active Substance: CODEINE PHOSPHATE
     Dosage: UNK, DAILY
     Dates: start: 20220620
  13. LEVOFLOXACIN [Concomitant]
     Active Substance: LEVOFLOXACIN
     Dosage: UNK, DAILY
     Dates: start: 20220620
  14. FLUIMUCIL [Concomitant]
     Active Substance: ACETYLCYSTEINE
     Dosage: UNK, DAILY
  15. CARBOPLATIN [Concomitant]
     Active Substance: CARBOPLATIN
     Dosage: UNK
     Dates: start: 20220504, end: 20220504
  16. ETOPOSIDE [Concomitant]
     Active Substance: ETOPOSIDE
     Dosage: UNK
     Dates: start: 20220504, end: 20220504

REACTIONS (7)
  - Death [Fatal]
  - Febrile neutropenia [Recovered/Resolved]
  - Cachexia [Recovered/Resolved]
  - Respiratory tract infection [Recovered/Resolved]
  - Asthenia [Recovered/Resolved]
  - Mucosal inflammation [Recovered/Resolved]
  - Asthenia [Not Recovered/Not Resolved]

NARRATIVE: CASE EVENT DATE: 20220223
